FAERS Safety Report 20147633 (Version 1)
Quarter: 2021Q4

REPORT INFORMATION
  Report Type: Spontaneous
  Country: US (occurrence: US)
  Receive Date: 20211203
  Receipt Date: 20211203
  Transmission Date: 20220303
  Serious: No
  Sender: FDA-Public Use
  Company Number: US-SA-SAC20211125001075

PATIENT
  Sex: Male

DRUGS (1)
  1. DUPIXENT [Suspect]
     Active Substance: DUPILUMAB
     Indication: Dermatitis atopic
     Dosage: 300 MG, QOW
     Route: 050

REACTIONS (6)
  - Varicella [Unknown]
  - Dermatitis atopic [Unknown]
  - Rash [Unknown]
  - Purpura [Unknown]
  - Scratch [Unknown]
  - Scab [Unknown]
